FAERS Safety Report 9156178 (Version 1)
Quarter: 2013Q1

REPORT INFORMATION
  Report Type: Spontaneous
  Country: US (occurrence: US)
  Receive Date: 20130123
  Receipt Date: 20130123
  Transmission Date: 20140127
  Serious: No
  Sender: FDA-Public Use
  Company Number: US-BRACCO-008090

PATIENT
  Age: 74 Year
  Sex: Female

DRUGS (4)
  1. PREDNISONE [Concomitant]
     Dates: end: 20120426
  2. MULTIHANCE [Suspect]
     Indication: NEUROLOGICAL DECOMPENSATION
     Route: 042
     Dates: start: 20120426, end: 20120426
  3. MULTIHANCE [Suspect]
     Indication: NUCLEAR MAGNETIC RESONANCE IMAGING BRAIN
     Route: 042
     Dates: start: 20120426, end: 20120426
  4. MULTIHANCE [Suspect]
     Indication: MENINGIOMA
     Route: 042
     Dates: start: 20120426, end: 20120426

REACTIONS (3)
  - Depressed level of consciousness [Recovered/Resolved]
  - Vomiting [Recovered/Resolved]
  - Aspiration [Recovered/Resolved]
